FAERS Safety Report 9761035 (Version 1)
Quarter: 2013Q4

REPORT INFORMATION
  Report Type: Report from Study
  Country: BR (occurrence: BR)
  Receive Date: 20131216
  Receipt Date: 20131216
  Transmission Date: 20140711
  Serious: Yes (Other)
  Sender: FDA-Public Use
  Company Number: PHHY2013BR144007

PATIENT
  Sex: Female
  Weight: 79 kg

DRUGS (3)
  1. ONBREZ [Suspect]
     Indication: DYSPNOEA
     Dosage: 150 UG, ONCE PER DAY
     Dates: start: 20130915
  2. ONBREZ [Suspect]
     Indication: OFF LABEL USE
  3. SPIRIVA [Concomitant]
     Indication: DYSPNOEA
     Dosage: 2.5 MG, UNK

REACTIONS (5)
  - Pulmonary fibrosis [Unknown]
  - Dyspnoea [Unknown]
  - Nervous system disorder [Unknown]
  - Malaise [Unknown]
  - Concomitant disease aggravated [Unknown]
